FAERS Safety Report 4286309-3 (Version None)
Quarter: 2004Q1

REPORT INFORMATION
  Report Type: 
  Country: None (occurrence: None)
  Receive Date: 20040116
  Receipt Date: 20021125
  Transmission Date: 20041129
  Serious: Yes (Disabling)
  Sender: FDA-Public Use
  Company Number: 326198

PATIENT
  Age: 16 Year
  Sex: Female
  Weight: 70.3 kg

DRUGS (4)
  1. VERSED [Suspect]
     Indication: SURGERY
     Dates: start: 20021023, end: 20021023
  2. TORADOL [Concomitant]
  3. FENTANYL CITRATE [Concomitant]
  4. DECADRON [Concomitant]

REACTIONS (6)
  - AMNESIA [None]
  - COMMUNICATION DISORDER [None]
  - DIFFICULTY IN WALKING [None]
  - DYSPHEMIA [None]
  - MEMORY IMPAIRMENT [None]
  - MENTAL IMPAIRMENT [None]
